FAERS Safety Report 11118526 (Version 1)
Quarter: 2015Q2

REPORT INFORMATION
  Report Type: Spontaneous
  Country: US (occurrence: None)
  Receive Date: 20150515
  Receipt Date: 20150515
  Transmission Date: 20150821
  Serious: Yes (Hospitalization)
  Sender: FDA-Public Use
  Company Number: None

PATIENT
  Age: 74 Year
  Sex: Female
  Weight: 120.7 kg

DRUGS (1)
  1. LISINOPRIL. [Suspect]
     Active Substance: LISINOPRIL
     Indication: HYPERTENSION
     Dosage: 20 MG AM PO
     Route: 048
     Dates: start: 20110506, end: 20120305

REACTIONS (3)
  - Angioedema [None]
  - Cerebrovascular accident [None]
  - Hypothyroidism [None]

NARRATIVE: CASE EVENT DATE: 20150311
